FAERS Safety Report 6104582-3 (Version None)
Quarter: 2009Q1

REPORT INFORMATION
  Report Type: 
  Country: None (occurrence: None)
  Receive Date: 20090303
  Receipt Date: 20090120
  Transmission Date: 20090719
  Serious: Yes (Death)
  Sender: FDA-Public Use
  Company Number: 1000004976

PATIENT
  Age: 26 Year
  Sex: Female

DRUGS (4)
  1. LEXAPRO [Suspect]
     Indication: BIPOLAR DISORDER
     Dosage: 10 MG, ORAL
     Route: 048
     Dates: start: 20050901, end: 20070116
  2. LEXAPRO [Suspect]
     Indication: MAJOR DEPRESSION
     Dosage: 10 MG, ORAL
     Route: 048
     Dates: start: 20050901, end: 20070116
  3. LEXAPRO [Suspect]
     Indication: PSYCHOTIC DISORDER
     Dosage: 10 MG, ORAL
     Route: 048
     Dates: start: 20050901, end: 20070116
  4. LEXAPRO [Suspect]
     Indication: SCHIZOAFFECTIVE DISORDER
     Dosage: 10 MG, ORAL
     Route: 048
     Dates: start: 20050901, end: 20070116

REACTIONS (2)
  - ASPHYXIA [None]
  - COMPLETED SUICIDE [None]
